FAERS Safety Report 11494811 (Version 1)
Quarter: 2015Q3

REPORT INFORMATION
  Report Type: Spontaneous
  Country: US (occurrence: US)
  Receive Date: 20150911
  Receipt Date: 20150911
  Transmission Date: 20151125
  Serious: No
  Sender: FDA-Public Use
  Company Number: US-ROCHE-795120

PATIENT
  Sex: Female

DRUGS (2)
  1. PEGASYS [Suspect]
     Active Substance: PEGINTERFERON ALFA-2A
     Indication: HEPATITIS C
     Route: 058
  2. RIBAVIRIN. [Suspect]
     Active Substance: RIBAVIRIN
     Indication: HEPATITIS C
     Dosage: DAILY
     Route: 048

REACTIONS (8)
  - Chest pain [Unknown]
  - Bronchitis [Unknown]
  - Body temperature increased [Unknown]
  - Pain in extremity [Unknown]
  - Hepatic pain [Unknown]
  - Dyspnoea [Unknown]
  - Abdominal distension [Unknown]
  - Bone pain [Unknown]
